FAERS Safety Report 4741879-3 (Version None)
Quarter: 2005Q3

REPORT INFORMATION
  Report Type: 
  Country: None (occurrence: None)
  Receive Date: 20050720
  Receipt Date: 20040625
  Transmission Date: 20060218
  Serious: No
  Sender: FDA-Public Use
  Company Number: 04H-163-0265246-00

PATIENT

DRUGS (1)
  1. HYDROMORPHONE HCL [Suspect]
     Dates: start: 20040101, end: 20040101

REACTIONS (2)
  - DRUG ADMINISTRATION ERROR [None]
  - SEDATION [None]
